FAERS Safety Report 9289334 (Version 1)
Quarter: 2013Q2

REPORT INFORMATION
  Report Type: Spontaneous
  Country: US (occurrence: US)
  Receive Date: 20130514
  Receipt Date: 20130514
  Transmission Date: 20140414
  Serious: Yes (Other)
  Sender: FDA-Public Use
  Company Number: US-PFIZER INC-2013148624

PATIENT
  Sex: Female

DRUGS (5)
  1. GEODON [Suspect]
     Dosage: UNK
  2. DEPAKOTE [Suspect]
     Dosage: UNK
  3. ABILIFY [Suspect]
     Dosage: UNK
  4. ZYPREXA [Suspect]
     Dosage: UNK
  5. INVEGA SUSTENNA [Suspect]
     Dosage: UNK

REACTIONS (6)
  - Impaired work ability [Unknown]
  - Convulsion [Unknown]
  - Somnolence [Unknown]
  - Hypertension [Unknown]
  - Weight increased [Unknown]
  - Diabetes mellitus [Unknown]
